FAERS Safety Report 15858394 (Version 1)
Quarter: 2018Q4

REPORT INFORMATION
  Report Type: Spontaneous
  Country: US (occurrence: US)
  Receive Date: 20181227
  Receipt Date: 20181227
  Transmission Date: 20190205
  Serious: No
  Sender: FDA-Public Use
  Company Number: None

PATIENT
  Sex: Female

DRUGS (3)
  1. LORAZEPAM. [Concomitant]
     Active Substance: LORAZEPAM
  2. LEXAPRO [Concomitant]
     Active Substance: ESCITALOPRAM OXALATE
  3. AFINITOR [Suspect]
     Active Substance: EVEROLIMUS
     Indication: DRUG THERAPY
     Dosage: ?          OTHER DOSE:TAKE 1 TAB;?
     Route: 048
     Dates: start: 20181122

REACTIONS (9)
  - Headache [None]
  - Hypersomnia [None]
  - Condition aggravated [None]
  - Back pain [None]
  - Abdominal pain upper [None]
  - Nausea [None]
  - Dizziness [None]
  - Neck pain [None]
  - Fatigue [None]
